FAERS Safety Report 10286284 (Version 3)
Quarter: 2014Q3

REPORT INFORMATION
  Report Type: Spontaneous
  Country: US (occurrence: US)
  Receive Date: 20140709
  Receipt Date: 20140903
  Transmission Date: 20150326
  Serious: Yes (Hospitalization)
  Sender: FDA-Public Use
  Company Number: US-ASTRAZENECA-2014SE48170

PATIENT
  Age: 1006 Month
  Sex: Female
  Weight: 61.2 kg

DRUGS (3)
  1. PULMICORT FLEXHALER [Suspect]
     Active Substance: BUDESONIDE
     Indication: PULMONARY FIBROSIS
     Route: 055
     Dates: start: 20140609
  2. AVELOX [Suspect]
     Active Substance: MOXIFLOXACIN HYDROCHLORIDE
     Route: 065
  3. PULMICORT FLEXHALER [Suspect]
     Active Substance: BUDESONIDE
     Indication: PULMONARY FIBROSIS
     Route: 055
     Dates: start: 20140609

REACTIONS (5)
  - Hypersensitivity [Recovering/Resolving]
  - Circumstance or information capable of leading to medication error [Unknown]
  - Hypotension [Recovering/Resolving]
  - Bronchitis [Recovering/Resolving]
  - Off label use [Unknown]

NARRATIVE: CASE EVENT DATE: 201406
